FAERS Safety Report 7274511-8 (Version None)
Quarter: 2011Q1

REPORT INFORMATION
  Report Type: 
  Country: None (occurrence: None)
  Receive Date: 20110204
  Receipt Date: 20110128
  Transmission Date: 20110831
  Serious: Yes (Other)
  Sender: FDA-Public Use
  Company Number: FR-BAXTER-2010BH029314

PATIENT
  Age: 52 Year
  Sex: Female

DRUGS (3)
  1. GAMMAGARD LIQUID [Suspect]
     Indication: LEWIS-SUMNER SYNDROME
     Route: 042
     Dates: start: 20101123, end: 20101127
  2. PREVISCAN [Concomitant]
     Indication: PHLEBITIS
     Route: 048
  3. GAMMAGARD LIQUID [Suspect]
     Indication: OFF LABEL USE
     Route: 042
     Dates: start: 20101123, end: 20101127

REACTIONS (3)
  - FACE OEDEMA [None]
  - SKIN REACTION [None]
  - HYPERSENSITIVITY [None]
